FAERS Safety Report 24574514 (Version 1)
Quarter: 2024Q4

REPORT INFORMATION
  Report Type: Spontaneous
  Country: GB (occurrence: GB)
  Receive Date: 20241104
  Receipt Date: 20241104
  Transmission Date: 20250115
  Serious: Yes (Other)
  Sender: TEVA
  Company Number: None

PATIENT
  Age: 66 Year
  Sex: Male
  Weight: 76 kg

DRUGS (1)
  1. PRAMIPEXOLE [Suspect]
     Active Substance: PRAMIPEXOLE\PRAMIPEXOLE DIHYDROCHLORIDE
     Indication: Adverse drug reaction
     Dosage: 0.88 X6 PER DAY
     Route: 065
     Dates: start: 20230522, end: 20240101

REACTIONS (2)
  - Medication error [Unknown]
  - Restless leg augmentation syndrome [Recovering/Resolving]

NARRATIVE: CASE EVENT DATE: 20240101
